FAERS Safety Report 18977868 (Version 1)
Quarter: 2021Q1

REPORT INFORMATION
  Report Type: Report from Study
  Country: US (occurrence: US)
  Receive Date: 20210306
  Receipt Date: 20210306
  Transmission Date: 20210420
  Serious: Yes (Hospitalization, Other)
  Sender: FDA-Public Use
  Company Number: US-ASTRAZENECA-2021A001852

PATIENT
  Sex: Female

DRUGS (2)
  1. LYNPARZA [Suspect]
     Active Substance: OLAPARIB
     Indication: OVARIAN CANCER
     Route: 048
     Dates: start: 201907, end: 202010
  2. LYNPARZA [Suspect]
     Active Substance: OLAPARIB
     Indication: OVARIAN CANCER
     Route: 048
     Dates: start: 20210213

REACTIONS (16)
  - Neutrophil count decreased [Unknown]
  - Gingival bleeding [Unknown]
  - Haemoglobin decreased [Not Recovered/Not Resolved]
  - Stomatitis [Unknown]
  - Petechiae [Unknown]
  - Decreased appetite [Unknown]
  - Platelet count decreased [Unknown]
  - Hypoacusis [Unknown]
  - Pyrexia [Unknown]
  - Myelodysplastic syndrome [Unknown]
  - Headache [Unknown]
  - Taste disorder [Unknown]
  - Carbohydrate antigen 125 increased [Unknown]
  - Cough [Unknown]
  - Febrile neutropenia [Unknown]
  - Nausea [Unknown]
